FAERS Safety Report 5444312-1 (Version None)
Quarter: 2007Q3

REPORT INFORMATION
  Report Type: 
  Country: None (occurrence: None)
  Receive Date: 20070904
  Receipt Date: 20070904
  Transmission Date: 20080115
  Serious: Yes (Other)
  Sender: FDA-Public Use
  Company Number: None

PATIENT
  Sex: Male
  Weight: 74.8435 kg

DRUGS (2)
  1. DILTIAZEM [Suspect]
     Indication: BLOOD PRESSURE
     Dosage: 240 MG 1 DAILY PO
     Route: 048
     Dates: start: 20070401, end: 20070825
  2. DILTIAZEM [Suspect]
     Dosage: 180 MG 1 DAILY PO
     Route: 048

REACTIONS (1)
  - CONSTIPATION [None]
